FAERS Safety Report 25897758 (Version 4)
Quarter: 2025Q4

REPORT INFORMATION
  Report Type: Spontaneous
  Country: US (occurrence: US)
  Receive Date: 20251008
  Receipt Date: 20251022
  Transmission Date: 20260118
  Serious: No
  Sender: PFIZER
  Company Number: US-PFIZER INC-PV202300091129

PATIENT
  Age: 49 Year
  Sex: Female
  Weight: 85.714 kg

DRUGS (4)
  1. LORBRENA [Suspect]
     Active Substance: LORLATINIB
     Indication: Lung neoplasm malignant
     Dosage: 100 MG, 1X/DAY (1 X 100 MG TABLET, EVERY DAY)
     Route: 048
  2. LORBRENA [Suspect]
     Active Substance: LORLATINIB
     Indication: Bronchial carcinoma
     Dosage: 100 MG, 3X/DAY (1 X 100 MG TABLET, 3 TIMES A DAY)
     Route: 048
  3. LORBRENA [Suspect]
     Active Substance: LORLATINIB
     Dosage: 100 MG, 1X/DAY
     Route: 048
  4. LORBRENA [Suspect]
     Active Substance: LORLATINIB
     Dosage: 100 MG, 3X/DAY (1 X 100 MG TABLET, 3 TIMES A DAY)
     Route: 048

REACTIONS (3)
  - Malaise [Unknown]
  - Product prescribing error [Unknown]
  - Off label use [Unknown]
